FAERS Safety Report 10160307 (Version 2)
Quarter: 2014Q2

REPORT INFORMATION
  Report Type: Spontaneous
  Country: US (occurrence: US)
  Receive Date: 20140508
  Receipt Date: 20140619
  Transmission Date: 20141212
  Serious: No
  Sender: FDA-Public Use
  Company Number: US-009507513-1405USA000234

PATIENT
  Sex: Female
  Weight: 63.49 kg

DRUGS (2)
  1. OXYTROL FOR WOMEN [Suspect]
     Indication: HYPERTONIC BLADDER
     Dosage: 1 DF, Q4D
     Route: 062
     Dates: start: 201312, end: 201405
  2. MAGNESIUM SULFATE [Suspect]
     Indication: PRODUCT USED FOR UNKNOWN INDICATION
     Dosage: UNK, UNKNOWN

REACTIONS (4)
  - Application site rash [Unknown]
  - Application site pruritus [Unknown]
  - Application site erythema [Recovered/Resolved]
  - Drug effect decreased [Unknown]
